FAERS Safety Report 21750054 (Version 1)
Quarter: 2022Q4

REPORT INFORMATION
  Report Type: Spontaneous
  Country: DE (occurrence: DE)
  Receive Date: 20221219
  Receipt Date: 20221219
  Transmission Date: 20230113
  Serious: Yes (Other)
  Sender: FDA-Public Use
  Company Number: DE-AMGEN-DEUNI2022213860

PATIENT
  Sex: Female

DRUGS (4)
  1. DEXAMETHASONE [Suspect]
     Active Substance: DEXAMETHASONE
     Indication: Plasma cell myeloma
     Dosage: 20 MILLIGRAM
     Route: 065
     Dates: start: 20220629
  2. CARFILZOMIB [Suspect]
     Active Substance: CARFILZOMIB
     Indication: Plasma cell myeloma
     Dosage: 45 MILLIGRAM
     Route: 065
     Dates: end: 20221116
  3. CARFILZOMIB [Suspect]
     Active Substance: CARFILZOMIB
     Dosage: 30 MILLIGRAM
     Route: 065
     Dates: start: 20220629
  4. REVLIMID [Suspect]
     Active Substance: LENALIDOMIDE
     Indication: Plasma cell myeloma
     Dosage: 15 MILLIGRAM
     Route: 065
     Dates: start: 20220629

REACTIONS (1)
  - Cardiotoxicity [Not Recovered/Not Resolved]

NARRATIVE: CASE EVENT DATE: 20221121
